FAERS Safety Report 4853527-2 (Version None)
Quarter: 2005Q4

REPORT INFORMATION
  Report Type: 
  Country: None (occurrence: None)
  Receive Date: 20051214
  Receipt Date: 20051207
  Transmission Date: 20060501
  Serious: Yes (Hospitalization)
  Sender: FDA-Public Use
  Company Number: PHBS2005JP18259

PATIENT
  Sex: Male

DRUGS (5)
  1. DIOVAN [Suspect]
     Indication: HYPERTENSION
     Dosage: 80 MG/DAY
     Route: 048
     Dates: start: 20051014, end: 20051113
  2. GASTER D [Concomitant]
     Dosage: 20 MG, UNK
     Route: 048
  3. WARFARIN SODIUM [Concomitant]
     Dosage: 3 MG, UNK
     Route: 048
  4. BASEN [Concomitant]
     Dosage: 0.6 MG, UNK
     Route: 048
  5. SELBEX [Concomitant]
     Dosage: 150 MG, UNK
     Route: 048

REACTIONS (2)
  - ADAMS-STOKES SYNDROME [None]
  - LOSS OF CONSCIOUSNESS [None]
